FAERS Safety Report 20996530 (Version 2)
Quarter: 2022Q3

REPORT INFORMATION
  Report Type: Report from Study
  Country: US (occurrence: US)
  Receive Date: 20220623
  Receipt Date: 20220708
  Transmission Date: 20221026
  Serious: Yes (Life-Threatening, Hospitalization)
  Sender: FDA-Public Use
  Company Number: US-ARGENX-2022-ARGX-US001026

PATIENT

DRUGS (1)
  1. VYVGART [Suspect]
     Active Substance: EFGARTIGIMOD ALFA-FCAB
     Indication: Myasthenia gravis
     Dosage: 940 MG
     Dates: start: 20220328

REACTIONS (4)
  - Myasthenia gravis [Unknown]
  - Postural orthostatic tachycardia syndrome [Unknown]
  - Therapy interrupted [Unknown]
  - Product dose omission issue [Unknown]
